FAERS Safety Report 8464308-5 (Version None)
Quarter: 2012Q2

REPORT INFORMATION
  Report Type: 
  Country: None (occurrence: None)
  Receive Date: 20120625
  Receipt Date: 20120612
  Transmission Date: 20120825
  Serious: Yes (Hospitalization, Other)
  Sender: FDA-Public Use
  Company Number: US-BAYER-2012-051939

PATIENT
  Age: 73 Year
  Sex: Male
  Weight: 104.78 kg

DRUGS (17)
  1. SYMLIN [Concomitant]
  2. HYDRALAZINE HYDROCHLORIDE [Concomitant]
  3. GABAPENTIN [Concomitant]
  4. BUMEX [Concomitant]
  5. ASPIRIN [Suspect]
     Dosage: 81 MG, UNK
     Dates: start: 20111001
  6. SULINDAC [Interacting]
     Indication: ILL-DEFINED DISORDER
     Dosage: 150 MG, UNK
  7. LANTUS [Concomitant]
  8. PRILOSEC [Concomitant]
  9. SIMVASTATIN [Concomitant]
  10. XARELTO [Interacting]
     Indication: THROMBOSIS PROPHYLAXIS
     Dosage: 10 MG, QD
     Route: 048
     Dates: start: 20111108, end: 20111101
  11. BENICAR [Concomitant]
  12. AMLODIPINE [Concomitant]
  13. MENTAX [Concomitant]
  14. ALLOPURINOL [Concomitant]
  15. XARELTO [Interacting]
     Indication: KNEE ARTHROPLASTY
  16. ASPIRIN [Interacting]
     Dosage: 81 MG, UNK
     Dates: start: 20111108
  17. INSULIN ASPART [Concomitant]

REACTIONS (6)
  - BALANCE DISORDER [None]
  - ASTHENIA [None]
  - CONFUSIONAL STATE [None]
  - DEPRESSED LEVEL OF CONSCIOUSNESS [None]
  - GASTROINTESTINAL HAEMORRHAGE [None]
  - DYSARTHRIA [None]
